FAERS Safety Report 24622715 (Version 7)
Quarter: 2024Q4

REPORT INFORMATION
  Report Type: Spontaneous
  Country: FR (occurrence: FR)
  Receive Date: 20241115
  Receipt Date: 20241219
  Transmission Date: 20250115
  Serious: Yes (Hospitalization, Other)
  Sender: AUROBINDO
  Company Number: FR-STADA-01311152

PATIENT
  Age: 75 Year
  Sex: Male
  Weight: 87.8 kg

DRUGS (49)
  1. PREDNISONE [Suspect]
     Active Substance: PREDNISONE
     Indication: Richter^s syndrome
     Dosage: UNK
     Route: 065
  2. PREDNISONE [Suspect]
     Active Substance: PREDNISONE
     Dosage: 100 MILLIGRAM (100 MG/DAY, C1D1, D1-D5, R-CHOP ON 3-WEEK CYCLE (21 DAYS))
     Route: 048
     Dates: start: 20241001
  3. PREDNISONE [Suspect]
     Active Substance: PREDNISONE
     Dosage: 100 MILLIGRAM, ONCE A DAY (R-CHOP THERAPY/D1-D5)
     Route: 042
     Dates: start: 20241001
  4. DOXORUBICIN [Suspect]
     Active Substance: DOXORUBICIN
     Indication: Richter^s syndrome
     Dosage: UNK
     Route: 042
     Dates: start: 20241001
  5. DOXORUBICIN [Suspect]
     Active Substance: DOXORUBICIN
     Dosage: 50 MG/M2 (50 MG/M2, C1D1, R-CHOP ON 3-WEEK CYCLE (21 DAYS) (DAY 1))
     Route: 042
     Dates: start: 20241001, end: 20241001
  6. DOXORUBICIN [Suspect]
     Active Substance: DOXORUBICIN
     Dosage: 50 MG/M2 (R-CHOP THERAPY)
     Route: 042
     Dates: start: 20241001
  7. DOXORUBICIN [Suspect]
     Active Substance: DOXORUBICIN
     Dosage: 50 MG/M2 (R-CHOP THERAPY)
     Route: 042
     Dates: start: 20241023, end: 20241023
  8. VINCRISTINE [Suspect]
     Active Substance: VINCRISTINE
     Indication: Richter^s syndrome
     Dosage: UNK
     Route: 042
     Dates: start: 20241001
  9. VINCRISTINE [Suspect]
     Active Substance: VINCRISTINE
     Dosage: 1.4 MG/M2 (1.4 MG/M2 (RECOMMENDED CAP OF 2 MG), C1D1, R-CHOP ON 3-WEEK CYCLE (21 DAYS) (DAY 1))
     Route: 042
     Dates: start: 20241001, end: 20241001
  10. VINCRISTINE [Suspect]
     Active Substance: VINCRISTINE
     Dosage: 1.4 MG/M2
     Route: 042
     Dates: start: 20241001
  11. VINCRISTINE [Suspect]
     Active Substance: VINCRISTINE
     Dosage: 1.4 MG/M2 (1.4 MG/M2 (RECOMMENDED CAP OF 2 MG), C1D1, R-CHOP ON 3-WEEK CYCLE (21 DAYS) (DAY 1))
     Route: 042
     Dates: start: 20241023, end: 20241023
  12. CYCLOPHOSPHAMIDE [Suspect]
     Active Substance: CYCLOPHOSPHAMIDE
     Indication: Richter^s syndrome
     Dosage: UNK
     Route: 042
     Dates: start: 20241001
  13. CYCLOPHOSPHAMIDE [Suspect]
     Active Substance: CYCLOPHOSPHAMIDE
     Dosage: 750 MG/M2 (EVERY 3 WEEK) (750 MG/M2, C1D1, R-CHOP ON 3-WEEK CYCLE (21 DAYS) (DAY 1))
     Route: 042
     Dates: start: 20241001, end: 20241001
  14. CYCLOPHOSPHAMIDE [Suspect]
     Active Substance: CYCLOPHOSPHAMIDE
     Dosage: 750 MG/M2
     Route: 042
     Dates: start: 20241001
  15. CYCLOPHOSPHAMIDE [Suspect]
     Active Substance: CYCLOPHOSPHAMIDE
     Dosage: 750 MG/M2 (EVERY 3 WEEK) (750 MG/M2, C1D1, R-CHOP ON 3-WEEK CYCLE (21 DAYS) (DAY 1))
     Route: 042
     Dates: start: 20241023, end: 20241023
  16. RITUXIMAB [Suspect]
     Active Substance: RITUXIMAB
     Indication: Richter^s syndrome
     Dosage: UNK
     Route: 042
     Dates: start: 20241001
  17. RITUXIMAB [Suspect]
     Active Substance: RITUXIMAB
     Dosage: 375 MG/M2 (3 WEEK), (375 MG/M2, C1D1, R-CHOP ON 3-WEEK CYCLE (21 DAYS) (DAY 1)) MOST RECENT DOSE
     Route: 042
     Dates: start: 20241001, end: 20241001
  18. RITUXIMAB [Suspect]
     Active Substance: RITUXIMAB
     Dosage: 375 MG/M2 (3 WEEK) (R-CHOP THERAPY/CONCENTRATE FOR SOLUTION FOR INFUSIO)
     Route: 042
     Dates: start: 20241001
  19. RITUXIMAB [Suspect]
     Active Substance: RITUXIMAB
     Dosage: 375 MG/M2 (3 WEEK), (375 MG/M2, C1D1, R-CHOP ON 3-WEEK CYCLE (21 DAYS) (DAY 1)) MOST RECENT DOSE
     Route: 042
     Dates: start: 20241023, end: 20241023
  20. EPCORITAMAB [Suspect]
     Active Substance: EPCORITAMAB
     Indication: Richter^s syndrome
     Dosage: 0.16 MILLIGRAM (EVERY 3 WEEK) (0.16 MG PRIMING DOSE ON C1D1 (DUOBODY-CD3XCD20))
     Route: 058
     Dates: start: 20241001, end: 20241001
  21. EPCORITAMAB [Suspect]
     Active Substance: EPCORITAMAB
     Dosage: 0.8 MILLIGRAM (0.8 MG INTERMEDIATE DOSE ON C1D8 (DUOBODY-CD3XCD20))
     Route: 058
     Dates: start: 20241008, end: 20241008
  22. EPCORITAMAB [Suspect]
     Active Substance: EPCORITAMAB
     Dosage: UNK
     Route: 058
     Dates: start: 20241016, end: 20241023
  23. EPCORITAMAB [Suspect]
     Active Substance: EPCORITAMAB
     Dosage: 48 MILLIGRAM, C2D15
     Route: 058
     Dates: start: 20241107, end: 20241107
  24. EPCORITAMAB [Suspect]
     Active Substance: EPCORITAMAB
     Dosage: 48 MILLIGRAM, C2D15
     Route: 058
     Dates: start: 20241023
  25. EPCORITAMAB [Suspect]
     Active Substance: EPCORITAMAB
     Dosage: 48 MILLIGRAM, FOR 3 WEEKS
     Route: 058
     Dates: start: 20241016
  26. ACETAMINOPHEN [Concomitant]
     Active Substance: ACETAMINOPHEN
     Indication: Premedication
     Dosage: UNK
     Route: 065
     Dates: start: 20241001, end: 20241001
  27. ACETAMINOPHEN [Concomitant]
     Active Substance: ACETAMINOPHEN
     Dosage: 1 GRAM (1 G, START TIME: AT 10:25 HRS)
     Route: 042
     Dates: start: 20241001, end: 20241001
  28. ACETAMINOPHEN [Concomitant]
     Active Substance: ACETAMINOPHEN
     Dosage: 1 GRAM (1 G, START TIME: AT 04:40 HRS)
     Route: 065
     Dates: start: 20241001, end: 20241001
  29. ACETAMINOPHEN [Concomitant]
     Active Substance: ACETAMINOPHEN
     Dosage: 1 GRAM, ONCE A DAY
     Route: 042
     Dates: start: 20241016, end: 20241017
  30. POLARAMINE [Concomitant]
     Active Substance: DEXCHLORPHENIRAMINE MALEATE
     Indication: Premedication
     Dosage: UNK
     Route: 065
     Dates: start: 20241001, end: 20241001
  31. POLARAMINE [Concomitant]
     Active Substance: DEXCHLORPHENIRAMINE MALEATE
     Dosage: 5 MILLIGRAM
     Route: 042
     Dates: start: 20241001, end: 20241001
  32. POLARAMINE [Concomitant]
     Active Substance: DEXCHLORPHENIRAMINE MALEATE
     Dosage: 5 MILLIGRAM, ONCE A DAY
     Route: 042
     Dates: start: 20241016, end: 20241016
  33. POLARAMINE [Concomitant]
     Active Substance: DEXCHLORPHENIRAMINE MALEATE
     Dosage: 5 MILLIGRAM
     Route: 042
     Dates: start: 20241023, end: 20241023
  34. POLARAMINE [Concomitant]
     Active Substance: DEXCHLORPHENIRAMINE MALEATE
     Dosage: 5 MILLIGRAM
     Route: 042
     Dates: start: 20241107, end: 20241107
  35. FOSFOMYCIN [Concomitant]
     Active Substance: FOSFOMYCIN
     Indication: Product used for unknown indication
     Dosage: UNK
     Route: 065
  36. SMECTA [Concomitant]
     Active Substance: MONTMORILLONITE
     Indication: Product used for unknown indication
     Dosage: UNK
     Route: 065
     Dates: start: 20241009, end: 20241010
  37. POTASSIUM CHLORIDE [Concomitant]
     Active Substance: POTASSIUM CHLORIDE
     Indication: Product used for unknown indication
     Dosage: UNK
     Route: 065
     Dates: start: 20241014, end: 20241016
  38. TOCILIZUMAB [Concomitant]
     Active Substance: TOCILIZUMAB
     Indication: Product used for unknown indication
     Dosage: UNK
     Route: 065
     Dates: start: 20241017, end: 20241018
  39. MEROPENEM [Concomitant]
     Active Substance: MEROPENEM
     Indication: Product used for unknown indication
     Dosage: UNK
     Route: 065
     Dates: start: 20241017, end: 20241019
  40. ELIQUIS [Concomitant]
     Active Substance: APIXABAN
     Indication: Product used for unknown indication
     Dosage: UNK
     Route: 065
  41. BISOPROLOL [Concomitant]
     Active Substance: BISOPROLOL
     Indication: Product used for unknown indication
     Dosage: UNK UNKNOWN
     Route: 065
  42. SILODOSIN [Concomitant]
     Active Substance: SILODOSIN
     Indication: Product used for unknown indication
     Dosage: UNK
     Route: 065
  43. TROSPIUM CHLORIDE [Concomitant]
     Active Substance: TROSPIUM CHLORIDE
     Indication: Product used for unknown indication
     Dosage: UNK
     Route: 065
  44. ALLOPURINOL [Concomitant]
     Active Substance: ALLOPURINOL
     Indication: Product used for unknown indication
     Dosage: UNK
     Route: 065
     Dates: start: 20240101
  45. BACTRIM [Concomitant]
     Active Substance: SULFAMETHOXAZOLE\TRIMETHOPRIM
     Indication: Product used for unknown indication
     Dosage: UNK
     Route: 065
     Dates: start: 20241001
  46. OMEPRAZOLE [Concomitant]
     Active Substance: OMEPRAZOLE
     Indication: Product used for unknown indication
     Dosage: UNK
     Route: 065
  47. TAHOR [Concomitant]
     Active Substance: ATORVASTATIN CALCIUM
     Indication: Product used for unknown indication
     Dosage: UNK
     Route: 065
     Dates: start: 2004
  48. OXYGEN [Concomitant]
     Active Substance: OXYGEN
     Indication: Product used for unknown indication
     Dosage: UNK
     Route: 065
     Dates: start: 20241016, end: 20241016
  49. VALACYCLOVIR HYDROCHLORIDE [Concomitant]
     Active Substance: VALACYCLOVIR HYDROCHLORIDE
     Indication: Product used for unknown indication
     Dosage: ONGOING
     Route: 065
     Dates: start: 20240101

REACTIONS (5)
  - Cytokine release syndrome [Recovered/Resolved]
  - Febrile neutropenia [Not Recovered/Not Resolved]
  - Pyrexia [Unknown]
  - Anaemia [Not Recovered/Not Resolved]
  - Off label use [Unknown]

NARRATIVE: CASE EVENT DATE: 20240128
